FAERS Safety Report 5286198-4 (Version None)
Quarter: 2007Q2

REPORT INFORMATION
  Report Type: 
  Country: None (occurrence: None)
  Receive Date: 20070403
  Receipt Date: 20070403
  Transmission Date: 20071010
  Serious: Yes (Hospitalization)
  Sender: FDA-Public Use
  Company Number: None

PATIENT
  Sex: Female
  Weight: 74.54 kg

DRUGS (2)
  1. CARBOPLATIN [Suspect]
     Dosage: 978 MG
  2. TAXOL [Suspect]
     Dosage: 315 MG

REACTIONS (7)
  - BACTERIAL CULTURE POSITIVE [None]
  - BACTERIAL INFECTION [None]
  - CHILLS [None]
  - CULTURE URINE POSITIVE [None]
  - ENTEROCOCCAL INFECTION [None]
  - NEUTROPHIL COUNT DECREASED [None]
  - VOMITING [None]
